FAERS Safety Report 7470255-8 (Version None)
Quarter: 2011Q2

REPORT INFORMATION
  Report Type: 
  Country: None (occurrence: None)
  Receive Date: 20110510
  Receipt Date: 20110506
  Transmission Date: 20111010
  Serious: Yes (Death, Hospitalization, Other)
  Sender: FDA-Public Use
  Company Number: MX-ROCHE-759220

PATIENT
  Sex: Female

DRUGS (14)
  1. AMBROSOL [Concomitant]
     Dates: start: 20101018, end: 20101202
  2. TYLEX [Concomitant]
     Dates: start: 20101113, end: 20101126
  3. VINFLUNINE [Suspect]
     Indication: BREAST CANCER
     Dosage: DATE OF LAST DOSE: 17 NOV 2010. UNIT: 280 MG/M2, CYCLICALSOLUTION FOR INJECTION, FROM D1 TO D14
     Route: 042
     Dates: start: 20101117
  4. SENNA-MINT WAF [Concomitant]
     Dates: start: 20101117
  5. SENNA-MINT WAF [Concomitant]
     Dates: start: 20101129, end: 20101201
  6. LAXATIVE NOS [Concomitant]
     Dates: start: 20101117, end: 20101122
  7. RANITIDINE [Concomitant]
     Dates: start: 20101102, end: 20101103
  8. BETAMETHASONE [Concomitant]
     Route: 055
     Dates: start: 20101119, end: 20101125
  9. TYLEX [Concomitant]
     Dates: start: 20101013, end: 20101126
  10. ALBUTEROL SULFATE AUTOHALER [Concomitant]
     Dates: start: 20101113, end: 20101126
  11. CAPECITABINE [Suspect]
     Indication: BREAST CANCER
     Dosage: DATE OF LAST DOSE: 21 NOV 2011. FILM COATED TABLET, D1 TO D14 EVERY THREE WEEKS
     Route: 048
     Dates: start: 20101117, end: 20101122
  12. CAPECITABINE [Suspect]
     Route: 048
     Dates: start: 20101129, end: 20101201
  13. BETAMETHASONE [Concomitant]
     Route: 055
     Dates: start: 20101013
  14. BECLOMETHASONE DIPROPIONATE [Concomitant]
     Dates: start: 20101113, end: 20101125

REACTIONS (4)
  - NEOPLASM MALIGNANT [None]
  - HAEMOGLOBIN DECREASED [None]
  - LEUKOCYTOSIS [None]
  - LOWER RESPIRATORY TRACT INFECTION [None]
